FAERS Safety Report 20144892 (Version 1)
Quarter: 2021Q4

REPORT INFORMATION
  Report Type: Spontaneous
  Country: US (occurrence: None)
  Receive Date: 20211202
  Receipt Date: 20211202
  Transmission Date: 20220303
  Serious: Yes (Hospitalization)
  Sender: FDA-Public Use
  Company Number: None

PATIENT
  Sex: Male

DRUGS (9)
  1. REBIF [Suspect]
     Active Substance: INTERFERON BETA-1A
     Indication: Multiple sclerosis
     Dosage: FREQUENCY : 3 TIMES A WEEK;?
     Route: 058
     Dates: start: 20180323
  2. CELEBREX [Concomitant]
     Active Substance: CELECOXIB
  3. COUMADIN [Concomitant]
     Active Substance: WARFARIN SODIUM
  4. DILTIAZEM [Concomitant]
     Active Substance: DILTIAZEM
  5. HYDROCHLOROTHIAZIDE [Concomitant]
     Active Substance: HYDROCHLOROTHIAZIDE
  6. METAMUCIL [Concomitant]
     Active Substance: PLANTAGO SEED
  7. VITAMINS [Concomitant]
     Active Substance: VITAMINS
  8. RANITIDINE [Concomitant]
     Active Substance: RANITIDINE
  9. TYLENOL [Concomitant]
     Active Substance: ACETAMINOPHEN

REACTIONS (2)
  - Colon operation [None]
  - Therapy interrupted [None]
